FAERS Safety Report 20047890 (Version 1)
Quarter: 2021Q4

REPORT INFORMATION
  Report Type: Spontaneous
  Country: FR (occurrence: FR)
  Receive Date: 20211109
  Receipt Date: 20211109
  Transmission Date: 20220304
  Serious: Yes (Hospitalization, Other)
  Sender: FDA-Public Use
  Company Number: FR-ABBVIE-21K-056-4152854-00

PATIENT
  Age: 90 Year
  Sex: Male
  Weight: 64.5 kg

DRUGS (2)
  1. DEPAKOTE [Suspect]
     Active Substance: DIVALPROEX SODIUM
     Indication: Bipolar disorder
     Route: 048
     Dates: start: 20190708, end: 20191007
  2. RIVAROXABAN [Suspect]
     Active Substance: RIVAROXABAN
     Indication: Arrhythmia
     Route: 048
     Dates: start: 201704, end: 20191014

REACTIONS (4)
  - Hepatic cytolysis [Recovering/Resolving]
  - Hepatitis cholestatic [Recovering/Resolving]
  - Hepatitis cholestatic [Recovering/Resolving]
  - Hepatic cytolysis [Recovered/Resolved]

NARRATIVE: CASE EVENT DATE: 20191007
